FAERS Safety Report 8234856-1 (Version None)
Quarter: 2012Q1

REPORT INFORMATION
  Report Type: 
  Country: None (occurrence: None)
  Receive Date: 20120326
  Receipt Date: 20120315
  Transmission Date: 20120608
  Serious: Yes (Other)
  Sender: FDA-Public Use
  Company Number: AU-GLAXOSMITHKLINE-Z0011585D

PATIENT
  Sex: Male
  Weight: 78 kg

DRUGS (2)
  1. PREDNISOLONE [Concomitant]
     Indication: AUTOIMMUNE THROMBOCYTOPENIA
     Dosage: 7.5MG PER DAY
     Route: 048
     Dates: start: 20120107, end: 20120308
  2. OFATUMUMAB [Suspect]
     Indication: CHRONIC LYMPHOCYTIC LEUKAEMIA
     Route: 042
     Dates: start: 20110917, end: 20120110

REACTIONS (1)
  - AUTOIMMUNE THROMBOCYTOPENIA [None]
